FAERS Safety Report 15262098 (Version 1)
Quarter: 2018Q3

REPORT INFORMATION
  Report Type: Spontaneous
  Country: AU (occurrence: AU)
  Receive Date: 20180809
  Receipt Date: 20180809
  Transmission Date: 20181010
  Serious: Yes (Other)
  Sender: FDA-Public Use
  Company Number: AU-BAYER-2018-142786

PATIENT
  Age: 61 Year
  Sex: Male

DRUGS (1)
  1. STIVARGA [Suspect]
     Active Substance: REGORAFENIB
     Indication: HEPATIC CANCER
     Dosage: 40 MG
     Route: 048
     Dates: start: 20180702, end: 20180726

REACTIONS (7)
  - Blood lactate dehydrogenase increased [None]
  - Aspartate aminotransferase increased [None]
  - Palmar-plantar erythrodysaesthesia syndrome [Recovered/Resolved]
  - Alpha 1 foetoprotein increased [None]
  - Nausea [Recovered/Resolved]
  - Erythema [Recovered/Resolved]
  - Pain in extremity [Recovered/Resolved]

NARRATIVE: CASE EVENT DATE: 2018
